FAERS Safety Report 8936690 (Version 1)
Quarter: 2012Q4

REPORT INFORMATION
  Report Type: 
  Country: US (occurrence: US)
  Receive Date: 20121130
  Receipt Date: 20121130
  Transmission Date: 20130627
  Serious: No
  Sender: FDA-Public Use
  Company Number: US-JNJFOC-20121111450

PATIENT
  Sex: Male
  Weight: 98.88 kg

DRUGS (5)
  1. FENTANYL TRANSDERMAL SYSTEM [Suspect]
     Indication: PAIN IN EXTREMITY
     Route: 062
  2. UNSPECIFIED FENTANYL TRANSDERMAL SYSTEM [Suspect]
     Indication: PAIN IN EXTREMITY
     Route: 062
  3. DURAGESIC [Suspect]
     Indication: PAIN IN EXTREMITY
     Route: 062
  4. DURAGESIC [Suspect]
     Indication: PAIN IN EXTREMITY
     Route: 062
  5. DURAGESIC [Suspect]
     Indication: PAIN IN EXTREMITY
     Route: 062

REACTIONS (2)
  - Wrong technique in drug usage process [Not Recovered/Not Resolved]
  - Wrong technique in drug usage process [Not Recovered/Not Resolved]
